FAERS Safety Report 4949056-8 (Version None)
Quarter: 2006Q1

REPORT INFORMATION
  Report Type: 
  Country: None (occurrence: None)
  Receive Date: 20060321
  Receipt Date: 20060310
  Transmission Date: 20060701
  Serious: Yes (Life-Threatening)
  Sender: FDA-Public Use
  Company Number: ES-GLAXOSMITHKLINE-B0416183A

PATIENT
  Age: 59 Year
  Sex: Male

DRUGS (3)
  1. FONDAPARINUX [Suspect]
     Indication: ACUTE MYOCARDIAL INFARCTION
     Dosage: 2.5MG PER DAY
     Route: 058
     Dates: start: 20041117
  2. ASPIRIN [Concomitant]
  3. ABCIXIMAB [Concomitant]

REACTIONS (2)
  - CARDIAC PROCEDURE COMPLICATION [None]
  - CORONARY ARTERY THROMBOSIS [None]
